FAERS Safety Report 25955381 (Version 1)
Quarter: 2025Q4

REPORT INFORMATION
  Report Type: Report from Study
  Country: US (occurrence: US)
  Receive Date: 20251024
  Receipt Date: 20251024
  Transmission Date: 20260118
  Serious: Yes (Other)
  Sender: ESTEVE
  Company Number: US-Esteve Pharmaceuticals SA-2187204

PATIENT
  Age: 50 Year
  Sex: Male

DRUGS (21)
  1. LYSODREN [Suspect]
     Active Substance: MITOTANE
     Indication: Adrenal gland cancer
     Dates: start: 20230802
  2. LYSODREN [Suspect]
     Active Substance: MITOTANE
  3. VENCLEXTA [Concomitant]
     Active Substance: VENETOCLAX
  4. LEVOFLOXACIN [Concomitant]
     Active Substance: LEVOFLOXACIN
  5. FLONASE ALGY [Concomitant]
  6. FIORICET [Concomitant]
     Active Substance: ACETAMINOPHEN\BUTALBITAL\CAFFEINE
  7. CRESEMBA [Concomitant]
     Active Substance: ISAVUCONAZONIUM SULFATE
  8. CHLORHEX GLU SOL 0.12% [Concomitant]
  9. CEFPODOXIME [Concomitant]
     Active Substance: CEFPODOXIME
  10. ALLOPURINOL [Concomitant]
     Active Substance: ALLOPURINOL
  11. ACYCLOVIR [Concomitant]
     Active Substance: ACYCLOVIR
  12. TRANSDERMAL CRE PAIN BAS [Concomitant]
  13. SODIUM BICAR [Concomitant]
  14. PROCHLORPER [Concomitant]
  15. ONDANSETRON [Concomitant]
     Active Substance: ONDANSETRON
  16. NEBIVOLOL [Concomitant]
     Active Substance: NEBIVOLOL
  17. LEVOTHYROXINE [Concomitant]
     Active Substance: LEVOTHYROXINE
  18. A-HYDROCORT [Concomitant]
     Active Substance: HYDROCORTISONE SODIUM SUCCINATE
  19. FOLIC ACID [Concomitant]
     Active Substance: FOLIC ACID
  20. FAMOTIDINE [Concomitant]
     Active Substance: FAMOTIDINE
  21. ANDROGEL [Concomitant]
     Active Substance: TESTOSTERONE

REACTIONS (2)
  - Adrenal insufficiency [Unknown]
  - Product dose omission issue [Unknown]
